FAERS Safety Report 6528861-0 (Version None)
Quarter: 2010Q1

REPORT INFORMATION
  Report Type: 
  Country: None (occurrence: None)
  Receive Date: 20100106
  Receipt Date: 20091228
  Transmission Date: 20100710
  Serious: Yes (Hospitalization)
  Sender: FDA-Public Use
  Company Number: FR-WYE-H12815410

PATIENT
  Age: 84 Year
  Sex: Female

DRUGS (6)
  1. CORDARONE [Suspect]
     Dosage: 200 MG TABLET, DOSE UNSPECIFIED
     Route: 048
     Dates: start: 20091120, end: 20091211
  2. ZYLORIC [Concomitant]
  3. ASPEGIC 1000 [Concomitant]
  4. BIPRETERAX [Concomitant]
  5. PLAVIX [Suspect]
     Dosage: 75 MG TABLET, DOSE UNSPECIFIED
     Route: 048
     Dates: start: 20091120, end: 20091211
  6. CRESTOR [Suspect]
     Dosage: UNSPECIFIED DOSE
     Route: 048
     Dates: start: 20091120, end: 20091211

REACTIONS (2)
  - AGRANULOCYTOSIS [None]
  - EOSINOPHILIA [None]
